FAERS Safety Report 7986727-3 (Version None)
Quarter: 2011Q4

REPORT INFORMATION
  Report Type: 
  Country: None (occurrence: None)
  Receive Date: 20111216
  Receipt Date: 20110217
  Transmission Date: 20120403
  Serious: No
  Sender: FDA-Public Use
  Company Number: US-BRISTOL-MYERS SQUIBB COMPANY-15556004

PATIENT
  Age: 6 Year
  Sex: Female
  Weight: 29 kg

DRUGS (4)
  1. FOCALIN [Concomitant]
  2. AMANTADINE HCL [Concomitant]
  3. ABILIFY [Suspect]
     Indication: AUTISM
     Dosage: LAST DOSE OF ABILIFY WAS ON 13FEB2011.
     Dates: end: 20110201
  4. LEXAPRO [Concomitant]

REACTIONS (1)
  - TARDIVE DYSKINESIA [None]
